FAERS Safety Report 5453143-8 (Version None)
Quarter: 2007Q3

REPORT INFORMATION
  Report Type: 
  Country: None (occurrence: None)
  Receive Date: 20070914
  Receipt Date: 20070911
  Transmission Date: 20080115
  Serious: Yes (Death, Hospitalization)
  Sender: FDA-Public Use
  Company Number: EC-ABBOTT-07P-047-0415932-00

PATIENT
  Sex: Male
  Weight: 66 kg

DRUGS (4)
  1. HUMIRA [Suspect]
     Indication: RHEUMATOID ARTHRITIS
     Route: 058
  2. PREDNISONE TAB [Concomitant]
     Indication: DRUG USE FOR UNKNOWN INDICATION
  3. LUMIRACOXIB [Concomitant]
     Indication: DRUG USE FOR UNKNOWN INDICATION
  4. METHOTREXATE [Concomitant]
     Indication: DRUG USE FOR UNKNOWN INDICATION

REACTIONS (2)
  - ACUTE RESPIRATORY DISTRESS SYNDROME [None]
  - ARTHRITIS BACTERIAL [None]
